FAERS Safety Report 5060601-7 (Version None)
Quarter: 2006Q3

REPORT INFORMATION
  Report Type: 
  Country: None (occurrence: None)
  Receive Date: 20060720
  Receipt Date: 20060720
  Transmission Date: 20061208
  Serious: Yes (Hospitalization)
  Sender: FDA-Public Use
  Company Number: None

PATIENT
  Age: 61 Year
  Sex: Female
  Weight: 55.3388 kg

DRUGS (10)
  1. PACLITAXEL [Suspect]
     Indication: LARYNGEAL CANCER RECURRENT
     Dosage: 31.80MG IV DAILY X 5
     Dates: start: 20060515, end: 20060519
  2. CISPLATIN [Suspect]
     Dosage: 23.85MG IV DAILY X 5
     Dates: start: 20060515, end: 20060519
  3. REGLAN [Concomitant]
  4. SALAGEN [Concomitant]
  5. PRILOSEC [Concomitant]
  6. AMBIEN [Concomitant]
  7. ATIVAN [Concomitant]
  8. BENADRYL [Concomitant]
  9. OXYCODONE HCL [Concomitant]
  10. SENNA-S [Concomitant]

REACTIONS (14)
  - ANAEMIA [None]
  - ASPIRATION [None]
  - BACTERIA SPUTUM IDENTIFIED [None]
  - CARDIAC FAILURE CONGESTIVE [None]
  - CENTRAL LINE INFECTION [None]
  - DRUG TOXICITY [None]
  - FEBRILE NEUTROPENIA [None]
  - ILEUS [None]
  - LETHARGY [None]
  - NEUROTOXICITY [None]
  - RENAL FAILURE ACUTE [None]
  - RESPIRATORY DISTRESS [None]
  - RESPIRATORY TRACT INFECTION [None]
  - STAPHYLOCOCCAL INFECTION [None]
